FAERS Safety Report 10072148 (Version 1)
Quarter: 2014Q2

REPORT INFORMATION
  Report Type: Spontaneous
  Country: US (occurrence: None)
  Receive Date: 20140410
  Receipt Date: 20140410
  Transmission Date: 20141212
  Serious: Yes (Other)
  Sender: FDA-Public Use
  Company Number: None

PATIENT
  Age: 36 Year
  Sex: Female
  Weight: 97.52 kg

DRUGS (2)
  1. LEVALBUTEROL HCL [Suspect]
     Indication: ASTHMA
     Dosage: 1 VIAL FOUR TIME  DAILY INHALATION
     Route: 055
     Dates: start: 20140405, end: 20140407
  2. LEVALBUTEROL HCL [Suspect]
     Indication: CHRONIC OBSTRUCTIVE PULMONARY DISEASE
     Dosage: 1 VIAL FOUR TIME  DAILY INHALATION
     Route: 055
     Dates: start: 20140405, end: 20140407

REACTIONS (2)
  - Wheezing [None]
  - Chest pain [None]
